FAERS Safety Report 11520224 (Version 1)
Quarter: 2015Q3

REPORT INFORMATION
  Report Type: Spontaneous
  Country: US (occurrence: None)
  Receive Date: 20150917
  Receipt Date: 20150917
  Transmission Date: 20151125
  Serious: Yes (Disabling)
  Sender: FDA-Public Use
  Company Number: None

PATIENT
  Age: 57 Year
  Sex: Female
  Weight: 58.06 kg

DRUGS (4)
  1. FENTANYL TRANSDERMAL SYSTEM [Concomitant]
     Active Substance: FENTANYL
  2. MITOMYCIN C [Suspect]
     Active Substance: MITOMYCIN
     Indication: BLADDER TRANSITIONAL CELL CARCINOMA
     Dosage: ONCE IN HOSPITAL INTRAVESICAL INSTILLATION
     Route: 043
  3. HYDROCODONE [Concomitant]
     Active Substance: HYDROCODONE
  4. ZOLOFT [Concomitant]
     Active Substance: SERTRALINE HYDROCHLORIDE

REACTIONS (12)
  - Off label use [None]
  - Bladder fibrosis [None]
  - Nocturia [None]
  - Pollakiuria [None]
  - Depression [None]
  - Cystitis interstitial [None]
  - Neoplasm [None]
  - Cystitis haemorrhagic [None]
  - Therapy change [None]
  - Pain [None]
  - Activities of daily living impaired [None]
  - Post procedural complication [None]

NARRATIVE: CASE EVENT DATE: 20120917
